FAERS Safety Report 7935658-3 (Version None)
Quarter: 2011Q4

REPORT INFORMATION
  Report Type: 
  Country: None (occurrence: None)
  Receive Date: 20111123
  Receipt Date: 20111110
  Transmission Date: 20120403
  Serious: Yes (Other)
  Sender: FDA-Public Use
  Company Number: BR-ELI_LILLY_AND_COMPANY-BR201109000194

PATIENT
  Sex: Female

DRUGS (6)
  1. HUMALOG [Suspect]
     Dosage: 10 IU, BID
     Route: 065
  2. HOMEOPATHIC PREPARATION [Concomitant]
     Indication: DIABETES MELLITUS
     Dosage: UNK, UNKNOWN
     Route: 065
  3. HUMULIN N [Suspect]
     Indication: DIABETES MELLITUS
     Dosage: UNK, BID
     Route: 065
  4. GESTODENE AND ETHINYL ESTRADIOL [Concomitant]
     Dosage: UNK, UNKNOWN
     Route: 065
  5. HUMULIN N [Suspect]
     Dosage: UNK UNK, TID
     Route: 065
  6. HUMALOG [Suspect]
     Indication: DIABETES MELLITUS
     Dosage: UNK UNK, TID
     Route: 065

REACTIONS (9)
  - BLOOD GLUCOSE INCREASED [None]
  - MATERNAL EXPOSURE DURING PREGNANCY [None]
  - HYPOGLYCAEMIA [None]
  - ABORTION SPONTANEOUS [None]
  - NERVOUS SYSTEM DISORDER [None]
  - HAEMOGLOBIN DECREASED [None]
  - MALAISE [None]
  - INTENTIONAL DRUG MISUSE [None]
  - SYNCOPE [None]
